FAERS Safety Report 13672012 (Version 2)
Quarter: 2017Q3

REPORT INFORMATION
  Report Type: Report from Study
  Country: DE (occurrence: DE)
  Receive Date: 20170621
  Receipt Date: 20170710
  Transmission Date: 20171127
  Serious: Yes (Death, Hospitalization)
  Sender: FDA-Public Use
  Company Number: DE-CELGENEUS-DEU-20170404504

PATIENT
  Age: 80 Year
  Sex: Female
  Weight: 57 kg

DRUGS (5)
  1. DEXAMETHASONE. [Concomitant]
     Active Substance: DEXAMETHASONE
     Indication: PANCREATIC CARCINOMA
     Route: 048
     Dates: start: 20140709, end: 20140917
  2. ABRAXANE [Suspect]
     Active Substance: PACLITAXEL
     Dosage: 160 MILLIGRAM
     Route: 041
     Dates: start: 20140827, end: 20140917
  3. ABRAXANE [Suspect]
     Active Substance: PACLITAXEL
     Indication: PANCREATIC CARCINOMA
     Dosage: 190 MG ABSOLUTE
     Route: 041
     Dates: start: 20140709, end: 20140820
  4. ONDANSETRON [Concomitant]
     Active Substance: ONDANSETRON
     Indication: PANCREATIC CARCINOMA
     Route: 048
     Dates: start: 20140709, end: 20140917
  5. GEMCITABINE [Suspect]
     Active Substance: GEMCITABINE\GEMCITABINE HYDROCHLORIDE
     Indication: PANCREATIC CARCINOMA
     Dosage: 155 MILLIGRAM
     Route: 041
     Dates: start: 20140709, end: 20140917

REACTIONS (2)
  - Pancreatic carcinoma [Fatal]
  - General physical health deterioration [Not Recovered/Not Resolved]

NARRATIVE: CASE EVENT DATE: 20140923
